FAERS Safety Report 21669836 (Version 1)
Quarter: 2022Q4

REPORT INFORMATION
  Report Type: Spontaneous
  Country: None (occurrence: LB)
  Receive Date: 20221201
  Receipt Date: 20221201
  Transmission Date: 20230113
  Serious: Yes (Death, Life-Threatening, Hospitalization)
  Sender: FDA-Public Use
  Company Number: LB-Nostrum Laboratories, Inc.-2135443

PATIENT
  Age: 61 Year
  Sex: Male
  Weight: 80 kg

DRUGS (3)
  1. METFORMIN HYDROCHLORIDE [Suspect]
     Active Substance: METFORMIN HYDROCHLORIDE
     Indication: Type 2 diabetes mellitus
     Route: 048
  2. AMLODIPINE [Concomitant]
     Active Substance: AMLODIPINE BESYLATE
     Route: 048
  3. IRBESARTAN [Concomitant]
     Active Substance: IRBESARTAN
     Route: 048

REACTIONS (7)
  - Lactic acidosis [Fatal]
  - Shock [Fatal]
  - Hypoxia [Fatal]
  - Anaemia [Not Recovered/Not Resolved]
  - Explorative laparotomy [Fatal]
  - Hepatic cirrhosis [Fatal]
  - Acute kidney injury [Fatal]
